FAERS Safety Report 23371651 (Version 1)
Quarter: 2024Q1

REPORT INFORMATION
  Report Type: Spontaneous
  Country: US (occurrence: None)
  Receive Date: 20240105
  Receipt Date: 20240105
  Transmission Date: 20240410
  Serious: Yes (Hospitalization)
  Sender: FDA-Public Use
  Company Number: None

PATIENT
  Sex: Female

DRUGS (19)
  1. OZEMPIC [Suspect]
     Active Substance: SEMAGLUTIDE
     Indication: Type 2 diabetes mellitus
     Route: 058
     Dates: start: 20230110
  2. ALBUTEROL NEB 0.083% [Concomitant]
  3. ASPIRIN-81 CHW 81MG [Concomitant]
  4. ATORVASTATIN TAB 20MG [Concomitant]
  5. CLOTRIMAZLE CRE 1% [Concomitant]
  6. DOXEPHIN HCL CAP 10MG [Concomitant]
  7. FAMOTIDINE TAB  20MG [Concomitant]
  8. FLUOCIN ACET CRE 0.01% [Concomitant]
  9. HYDROMORPHON TAB 4MG [Concomitant]
  10. LORAZEPAM TAB 1MG [Concomitant]
  11. MECLIZINE TAB 25MG [Concomitant]
  12. METOPROL TAR TAB 100MG [Concomitant]
  13. NEXIUM CAP [Concomitant]
  14. PROAIR HFA AER [Concomitant]
  15. PROCHLORPER TAB [Concomitant]
  16. REMICADE INJ [Concomitant]
  17. SYMBICORT AER [Concomitant]
  18. SYNTHROID TAB [Concomitant]
  19. VITAMIN D3 [Concomitant]

REACTIONS (1)
  - Hospitalisation [None]
